APPROVED DRUG PRODUCT: BETAPACE
Active Ingredient: SOTALOL HYDROCHLORIDE
Strength: 80MG
Dosage Form/Route: TABLET;ORAL
Application: N019865 | Product #001 | TE Code: AB
Applicant: LEGACY PHARMA INC
Approved: Oct 30, 1992 | RLD: Yes | RS: No | Type: RX